FAERS Safety Report 13627915 (Version 1)
Quarter: 2017Q2

REPORT INFORMATION
  Report Type: Spontaneous
  Country: US (occurrence: US)
  Receive Date: 20170607
  Receipt Date: 20170607
  Transmission Date: 20170830
  Serious: Yes (Other)
  Sender: FDA-Public Use
  Company Number: US-OMEROS CORPORATION-2017OME00005

PATIENT
  Age: 69 Year
  Sex: Male
  Weight: 97.51 kg

DRUGS (32)
  1. PHENYLEPHRINE [Concomitant]
     Active Substance: PHENYLEPHRINE\PHENYLEPHRINE HYDROCHLORIDE
     Indication: INTRAOCULAR LENS IMPLANT
  2. TROPICAMIDE. [Concomitant]
     Active Substance: TROPICAMIDE
     Indication: INTRAOCULAR LENS IMPLANT
  3. BUPIVICAINE [Concomitant]
     Active Substance: BUPIVACAINE
     Indication: CATARACT OPERATION
     Dosage: 1 DROP, 3X/DAY EVERY 5 MINUTES X3
     Dates: start: 20170503, end: 20170503
  4. PROVISC [Concomitant]
     Indication: CATARACT OPERATION
     Dosage: UNK
     Dates: start: 20170503, end: 20170503
  5. XYLOCAINE MPF [Concomitant]
     Active Substance: LIDOCAINE HYDROCHLORIDE
     Indication: INTRAOCULAR LENS IMPLANT
  6. VERSED [Concomitant]
     Active Substance: MIDAZOLAM HYDROCHLORIDE
     Indication: CATARACT OPERATION
     Dosage: 2 MG, UNK
     Dates: start: 20170503, end: 20170503
  7. BACTERIOSTATIC SODIUM CHLORIDE [Concomitant]
     Active Substance: SODIUM CHLORIDE
     Indication: INTRAOCULAR LENS IMPLANT
  8. LACTATED RINGERS [Concomitant]
     Active Substance: CALCIUM CHLORIDE\POTASSIUM CHLORIDE\SODIUM CHLORIDE\SODIUM LACTATE
     Indication: INTRAOCULAR LENS IMPLANT
  9. PHENYLEPHRINE [Concomitant]
     Active Substance: PHENYLEPHRINE\PHENYLEPHRINE HYDROCHLORIDE
     Indication: CATARACT OPERATION
     Dosage: 1 DROP, 2X/DAY EVERY 15 MINUTES X2
     Dates: start: 20170503, end: 20170503
  10. BUPIVICAINE [Concomitant]
     Active Substance: BUPIVACAINE
     Indication: INTRAOCULAR LENS IMPLANT
  11. PROVISC [Concomitant]
     Indication: INTRAOCULAR LENS IMPLANT
  12. XYLOCAINE MPF [Concomitant]
     Active Substance: LIDOCAINE HYDROCHLORIDE
     Indication: CATARACT OPERATION
     Dosage: UNK
     Dates: start: 20170503, end: 20170503
  13. ZOFRAN [Concomitant]
     Active Substance: ONDANSETRON HYDROCHLORIDE
     Indication: CATARACT OPERATION
     Dosage: 4 MG, UNK
     Dates: start: 20170503, end: 20170503
  14. ZOFRAN [Concomitant]
     Active Substance: ONDANSETRON HYDROCHLORIDE
     Indication: INTRAOCULAR LENS IMPLANT
  15. OMIDRIA [Suspect]
     Active Substance: KETOROLAC\PHENYLEPHRINE
     Indication: CATARACT OPERATION
     Dosage: 4 ML, ONCE
     Route: 031
     Dates: start: 20170503, end: 20170503
  16. SINGULAIR [Concomitant]
     Active Substance: MONTELUKAST SODIUM
     Dosage: 10 MG, 1X/DAY
     Route: 048
  17. GATIFLOXACIN. [Concomitant]
     Active Substance: GATIFLOXACIN
     Indication: CATARACT OPERATION
     Dosage: 1 DROP, 2X/DAY, EVERY 15 MINUTES X2
     Dates: start: 20170503, end: 20170503
  18. VERSED [Concomitant]
     Active Substance: MIDAZOLAM HYDROCHLORIDE
     Indication: INTRAOCULAR LENS IMPLANT
  19. CLARINEX [Concomitant]
     Active Substance: DESLORATADINE
     Dosage: 2.5 MG, AS NEEDED
     Route: 048
  20. PRAVASTATIN. [Concomitant]
     Active Substance: PRAVASTATIN
     Dosage: 40 MG, 1X/DAY
     Route: 048
  21. BACTERIOSTATIC SODIUM CHLORIDE [Concomitant]
     Active Substance: SODIUM CHLORIDE
     Indication: CATARACT OPERATION
     Dosage: 500 ML, UNK
     Dates: start: 20170503, end: 20170503
  22. GATIFLOXACIN. [Concomitant]
     Active Substance: GATIFLOXACIN
     Indication: INTRAOCULAR LENS IMPLANT
  23. ADVAIR HFA [Concomitant]
     Active Substance: FLUTICASONE PROPIONATE\SALMETEROL XINAFOATE
     Dosage: UNK, 1X/DAY
  24. OMIDRIA [Suspect]
     Active Substance: KETOROLAC\PHENYLEPHRINE
     Indication: INTRAOCULAR LENS IMPLANT
  25. CITALOPRAM [Concomitant]
     Active Substance: CITALOPRAM HYDROBROMIDE
     Dosage: 20 MG, 1X/DAY
     Route: 048
  26. VALIUM [Concomitant]
     Active Substance: DIAZEPAM
     Indication: INTRAOCULAR LENS IMPLANT
  27. CYCLOPENTOLATE. [Concomitant]
     Active Substance: CYCLOPENTOLATE
     Indication: INTRAOCULAR LENS IMPLANT
  28. CIALIS [Concomitant]
     Active Substance: TADALAFIL
     Dosage: 20 MG, AS NEEDED
  29. LACTATED RINGERS [Concomitant]
     Active Substance: CALCIUM CHLORIDE\POTASSIUM CHLORIDE\SODIUM CHLORIDE\SODIUM LACTATE
     Indication: CATARACT OPERATION
     Dosage: 500 ML, UNK
     Dates: start: 20170503, end: 20170503
  30. VALIUM [Concomitant]
     Active Substance: DIAZEPAM
     Indication: CATARACT OPERATION
     Dosage: 5 MG, UNK
     Route: 048
     Dates: start: 20170503, end: 20170503
  31. TROPICAMIDE. [Concomitant]
     Active Substance: TROPICAMIDE
     Indication: CATARACT OPERATION
     Dosage: 1 DROP, 2X/DAY EVERY 15 MINUTES
     Dates: start: 20170503, end: 20170503
  32. CYCLOPENTOLATE. [Concomitant]
     Active Substance: CYCLOPENTOLATE
     Indication: CATARACT OPERATION
     Dosage: 1 DROP, 2X/DAY EVERY 15 MINUTES X2
     Dates: start: 20170503, end: 20170503

REACTIONS (1)
  - Endophthalmitis [Not Recovered/Not Resolved]

NARRATIVE: CASE EVENT DATE: 20170507
